FAERS Safety Report 8113764-0 (Version None)
Quarter: 2012Q1

REPORT INFORMATION
  Report Type: 
  Country: None (occurrence: None)
  Receive Date: 20120203
  Receipt Date: 20070731
  Transmission Date: 20120608
  Serious: Yes (Death)
  Sender: FDA-Public Use
  Company Number: NL-ABBOTT-12P-114-0900953-00

PATIENT
  Sex: Female
  Weight: 61 kg

DRUGS (3)
  1. TEVETEN [Suspect]
     Indication: ESSENTIAL HYPERTENSION
     Dosage: 600 MG/DAY
     Dates: start: 20050418
  2. OXAZEPAM [Concomitant]
     Indication: SLEEP DISORDER
  3. DICLOFENAC [Concomitant]
     Indication: PAIN

REACTIONS (1)
  - METASTASES TO CENTRAL NERVOUS SYSTEM [None]
